FAERS Safety Report 22164545 (Version 2)
Quarter: 2023Q2

REPORT INFORMATION
  Report Type: Report from Study
  Country: TW (occurrence: TW)
  Receive Date: 20230403
  Receipt Date: 20230404
  Transmission Date: 20230722
  Serious: Yes (Hospitalization)
  Sender: FDA-Public Use
  Company Number: TW-ABBVIE-4713193

PATIENT
  Age: 21 Year
  Sex: Male

DRUGS (11)
  1. SKYRIZI [Suspect]
     Active Substance: RISANKIZUMAB-RZAA
     Indication: Psoriasis
     Route: 058
     Dates: start: 20230104
  2. UTRAPHEN [Concomitant]
     Indication: Anal fistula
     Dosage: TRAMADOL 37.5MG + ACETAMINOPHEN 325MG / TAB
     Route: 048
     Dates: start: 20230223
  3. FLEET ENEMA [Concomitant]
     Active Substance: SODIUM PHOSPHATE, DIBASIC\SODIUM PHOSPHATE, MONOBASIC
     Indication: Anal fistula
     Dosage: 118ML / BOT
     Dates: start: 20230222, end: 20230222
  4. BUPIVACAINE [Concomitant]
     Active Substance: BUPIVACAINE
     Indication: Anal fistula
     Dosage: 0.5% , 20ML / VIAL
     Dates: start: 20230222, end: 20230222
  5. MAGNESIUM OXIDE [Concomitant]
     Active Substance: MAGNESIUM OXIDE
     Indication: Anal fistula
     Dosage: 250MG / TAB
     Route: 048
     Dates: start: 20230223
  6. MEFENAMIC ACID [Concomitant]
     Active Substance: MEFENAMIC ACID
     Indication: Anal fistula
     Dosage: 250MG / CAP
     Route: 048
     Dates: start: 20230223
  7. EPINEPHRINE [Concomitant]
     Active Substance: EPINEPHRINE
     Indication: Anal fistula
     Dosage: 1MG / 1ML / AMP
     Route: 042
     Dates: start: 20230222, end: 20230222
  8. ACETAMINOPHEN [Concomitant]
     Active Substance: ACETAMINOPHEN
     Indication: Anal fistula
     Dosage: 500 MG / TAB
     Route: 048
     Dates: start: 20230223
  9. AMOXICILLIN\CLAVULANIC ACID [Concomitant]
     Active Substance: AMOXICILLIN\CLAVULANIC ACID
     Indication: Anal fistula
     Dosage: 1 GRAM / TAB?CLAVULANIC ACID 125MG AMOXYCILLIN 875MG
     Route: 048
     Dates: start: 20230223
  10. Neomycin + Tyrothricin onit [Concomitant]
     Indication: Anal fistula
     Dosage: 40MG / TUBE
     Route: 061
     Dates: start: 20230222, end: 20230222
  11. Neomycin + Tyrothricin onit [Concomitant]
     Indication: Anal fistula
     Dosage: 40MG / TUBE
     Route: 061
     Dates: start: 20230222, end: 20230222

REACTIONS (1)
  - Anal fistula [Recovered/Resolved]

NARRATIVE: CASE EVENT DATE: 20230222
